FAERS Safety Report 9738431 (Version 2)
Quarter: 2013Q4

REPORT INFORMATION
  Report Type: Report from Study
  Country: HU (occurrence: HU)
  Receive Date: 20131208
  Receipt Date: 20131208
  Transmission Date: 20140711
  Serious: Yes (Hospitalization)
  Sender: FDA-Public Use
  Company Number: HU-ROCHE-1284143

PATIENT
  Sex: Male

DRUGS (4)
  1. XELODA [Suspect]
     Indication: COLORECTAL CANCER
     Route: 048
     Dates: start: 20130715, end: 2013
  2. XELODA [Suspect]
     Route: 048
     Dates: start: 20130715, end: 2013
  3. OXALIPLATIN [Concomitant]
     Indication: COLORECTAL CANCER
  4. INSULIN [Concomitant]

REACTIONS (3)
  - Pneumonia [Recovered/Resolved]
  - Mucosal inflammation [Recovered/Resolved]
  - Palmar-plantar erythrodysaesthesia syndrome [Recovered/Resolved]
